FAERS Safety Report 9904895 (Version 2)
Quarter: 2014Q1

REPORT INFORMATION
  Report Type: Spontaneous
  Country: US (occurrence: US)
  Receive Date: 20140218
  Receipt Date: 20140218
  Transmission Date: 20141002
  Serious: No
  Sender: FDA-Public Use
  Company Number: US-ENDO PHARMACEUTICALS INC.-PERP20120005

PATIENT
  Age: 51 Year
  Sex: Female
  Weight: 74.91 kg

DRUGS (2)
  1. PERPHENAZINE TABLETS 4MG [Suspect]
     Indication: INSOMNIA
     Route: 048
     Dates: start: 20121207, end: 201212
  2. PERPHENAZINE TABLETS 4MG [Suspect]
     Indication: PARANOIA
     Route: 048
     Dates: start: 201212

REACTIONS (4)
  - Dry eye [Unknown]
  - Dry mouth [Unknown]
  - Headache [Recovered/Resolved]
  - Drug effect decreased [Unknown]
